FAERS Safety Report 5592941-7 (Version None)
Quarter: 2008Q1

REPORT INFORMATION
  Report Type: 
  Country: None (occurrence: None)
  Receive Date: 20080116
  Receipt Date: 20080103
  Transmission Date: 20080703
  Serious: Yes (Other)
  Sender: FDA-Public Use
  Company Number: US-AMGEN-US259133

PATIENT
  Sex: Female

DRUGS (2)
  1. PROCRIT [Suspect]
     Indication: RENAL FAILURE CHRONIC
     Route: 051
  2. PREDNISONE TAB [Concomitant]
     Route: 048

REACTIONS (2)
  - HAEMOGLOBIN INCREASED [None]
  - THROMBOCYTOPENIA [None]
